FAERS Safety Report 6568495-5 (Version None)
Quarter: 2010Q1

REPORT INFORMATION
  Report Type: 
  Country: None (occurrence: None)
  Receive Date: 20100203
  Receipt Date: 20100127
  Transmission Date: 20100710
  Serious: Yes (Other)
  Sender: FDA-Public Use
  Company Number: B0629711A

PATIENT
  Age: 78 Year
  Sex: Male

DRUGS (2)
  1. ARIXTRA [Suspect]
     Indication: THROMBOSIS PROPHYLAXIS
     Dosage: 1.5MG PER DAY
     Route: 058
     Dates: start: 20100120, end: 20100124
  2. LORCAM [Concomitant]
     Indication: ANALGESIC THERAPY
     Dosage: 4MG PER DAY
     Route: 048
     Dates: start: 20100120, end: 20100120

REACTIONS (4)
  - DECREASED APPETITE [None]
  - DUODENAL ULCER [None]
  - HAEMORRHAGE [None]
  - VOMITING [None]
